FAERS Safety Report 19956307 (Version 2)
Quarter: 2021Q4

REPORT INFORMATION
  Report Type: Spontaneous
  Country: US (occurrence: US)
  Receive Date: 20211014
  Receipt Date: 20211123
  Transmission Date: 20220304
  Serious: No
  Sender: FDA-Public Use
  Company Number: US-PFIZER INC-2020389467

PATIENT
  Age: 12 Year
  Sex: Male

DRUGS (1)
  1. GENOTROPIN [Suspect]
     Active Substance: SOMATROPIN
     Dosage: ALTERNATING 1.2 AND 1.4 MG
     Dates: start: 202010

REACTIONS (4)
  - Poor quality device used [Unknown]
  - Needle issue [Unknown]
  - Injection site pain [Unknown]
  - Product prescribing error [Unknown]
